FAERS Safety Report 8171789-3 (Version None)
Quarter: 2012Q1

REPORT INFORMATION
  Report Type: 
  Country: None (occurrence: None)
  Receive Date: 20120228
  Receipt Date: 20120222
  Transmission Date: 20120608
  Serious: Yes (Hospitalization)
  Sender: FDA-Public Use
  Company Number: US-GLAXOSMITHKLINE-A0967722A

PATIENT
  Age: 51 Year
  Sex: Female
  Weight: 56.8 kg

DRUGS (10)
  1. TRICOR [Concomitant]
  2. ADDERALL 5 [Concomitant]
  3. PAXIL [Suspect]
     Indication: DEPRESSION
     Route: 065
  4. CRESTOR [Concomitant]
  5. CLONAZEPAM [Concomitant]
  6. UNSPECIFIED MEDICATION [Suspect]
     Indication: DEPRESSION
     Route: 065
  7. AMLODIPINE [Concomitant]
  8. WELLBUTRIN [Suspect]
     Indication: DEPRESSION
     Route: 065
  9. PLAVIX [Concomitant]
  10. ASPIRIN [Concomitant]

REACTIONS (2)
  - SUICIDE ATTEMPT [None]
  - DEPRESSION [None]
